FAERS Safety Report 23354224 (Version 1)
Quarter: 2024Q1

REPORT INFORMATION
  Report Type: Spontaneous
  Country: FR (occurrence: FR)
  Receive Date: 20240101
  Receipt Date: 20240101
  Transmission Date: 20240409
  Serious: Yes (Hospitalization, Other)
  Sender: FDA-Public Use
  Company Number: FR-AFSSAPS-PV2023001186

PATIENT
  Age: 14 Year
  Sex: Male
  Weight: 48 kg

DRUGS (4)
  1. AMOXICILLIN [Suspect]
     Active Substance: AMOXICILLIN
     Indication: Pleurisy bacterial
     Dosage: 200 MILLIGRAM/KILOGRAM, ONCE A DAY
     Route: 042
     Dates: start: 20231124, end: 20231206
  2. CLINDAMYCIN [Suspect]
     Active Substance: CLINDAMYCIN
     Indication: Pleurisy bacterial
     Dosage: 10 MILLIGRAM/KILOGRAM, FOUR TIMES/DAY
     Route: 042
     Dates: start: 20231123, end: 20231125
  3. CLINDAMYCIN [Suspect]
     Active Substance: CLINDAMYCIN
     Dosage: 10 MILLIGRAM/KILOGRAM, FOUR TIMES/DAY
     Route: 042
     Dates: start: 20231130, end: 20231201
  4. ACETAMINOPHEN [Concomitant]
     Active Substance: ACETAMINOPHEN
     Indication: Product used for unknown indication
     Dosage: UNK
     Route: 065

REACTIONS (1)
  - Hepatic cytolysis [Recovering/Resolving]

NARRATIVE: CASE EVENT DATE: 20231202
